FAERS Safety Report 18781086 (Version 1)
Quarter: 2021Q1

REPORT INFORMATION
  Report Type: Spontaneous
  Country: US (occurrence: US)
  Receive Date: 20210123
  Receipt Date: 20210123
  Transmission Date: 20210419
  Serious: Yes (Hospitalization)
  Sender: FDA-Public Use
  Company Number: None

PATIENT
  Age: 80 Year
  Sex: Male
  Weight: 100.4 kg

DRUGS (2)
  1. NEXAVAR [Suspect]
     Active Substance: SORAFENIB
     Dates: end: 20201218
  2. EVEROLIMUS (RAD?001) [Suspect]
     Active Substance: EVEROLIMUS
     Dates: end: 20201218

REACTIONS (4)
  - Disease progression [None]
  - Gait disturbance [None]
  - Dyspnoea exertional [None]
  - Peripheral swelling [None]

NARRATIVE: CASE EVENT DATE: 20210112
